FAERS Safety Report 12321714 (Version 1)
Quarter: 2016Q2

REPORT INFORMATION
  Report Type: Spontaneous
  Country: US (occurrence: None)
  Receive Date: 20160429
  Receipt Date: 20160429
  Transmission Date: 20160815
  Serious: Yes (Life-Threatening)
  Sender: FDA-Public Use
  Company Number: None

PATIENT
  Age: 57 Year
  Sex: Female
  Weight: 58 kg

DRUGS (14)
  1. CISATRACURIUM ABBVIE [Suspect]
     Active Substance: CISATRACURIUM
     Indication: MUSCLE RELAXANT THERAPY
     Route: 040
     Dates: start: 20160310, end: 20160310
  2. CALCIUM GLUCONATE. [Concomitant]
     Active Substance: CALCIUM GLUCONATE
  3. VANCOMYCIN [Concomitant]
     Active Substance: VANCOMYCIN
  4. LIDOCAINE. [Concomitant]
     Active Substance: LIDOCAINE
  5. FAMOTIDINE. [Concomitant]
     Active Substance: FAMOTIDINE
  6. LEVOPHED [Concomitant]
     Active Substance: NOREPINEPHRINE BITARTRATE
  7. HEPARIN [Concomitant]
     Active Substance: HEPARIN SODIUM
  8. PIPERCILLIN-TAZOBACTAM [Concomitant]
  9. ASA [Concomitant]
     Active Substance: ASPIRIN
  10. FENTANYL. [Concomitant]
     Active Substance: FENTANYL
  11. MAGNESIUM SULFATE. [Concomitant]
     Active Substance: MAGNESIUM SULFATE
  12. AZITHROMYCIN ANHYDROUS. [Concomitant]
     Active Substance: AZITHROMYCIN ANHYDROUS
  13. PROPOFOL. [Concomitant]
     Active Substance: PROPOFOL
  14. DEXTROSE. [Concomitant]
     Active Substance: DEXTROSE

REACTIONS (5)
  - Cardiac arrest [None]
  - Myocardial ischaemia [None]
  - Atrioventricular block complete [None]
  - Pulseless electrical activity [None]
  - Shock [None]

NARRATIVE: CASE EVENT DATE: 20160310
